FAERS Safety Report 6646521-2 (Version None)
Quarter: 2010Q1

REPORT INFORMATION
  Report Type: 
  Country: None (occurrence: None)
  Receive Date: 20100309
  Receipt Date: 20091215
  Transmission Date: 20100710
  Serious: No
  Sender: FDA-Public Use
  Company Number: 2009SP042068

PATIENT
  Age: 41 Year
  Sex: Female

DRUGS (2)
  1. SAPHRIS [Suspect]
     Indication: DRUG USE FOR UNKNOWN INDICATION
     Dosage: 5 MG; HS; : 5 MG; BID; : 5 MG; HS;
  2. SAPHRIS [Suspect]
     Indication: DRUG USE FOR UNKNOWN INDICATION
     Dosage: 5 MG; HS; : 5 MG; BID; : 5 MG; HS;

REACTIONS (4)
  - DRUG INTOLERANCE [None]
  - INAPPROPRIATE SCHEDULE OF DRUG ADMINISTRATION [None]
  - ORAL DISCOMFORT [None]
  - TOOTH DISCOLOURATION [None]
